FAERS Safety Report 10057038 (Version 1)
Quarter: 2014Q2

REPORT INFORMATION
  Report Type: Report from Study
  Country: JP (occurrence: JP)
  Receive Date: 20140403
  Receipt Date: 20140403
  Transmission Date: 20141212
  Serious: Yes (Hospitalization)
  Sender: FDA-Public Use
  Company Number: JP-B.I. PHARMACEUTICALS,INC./RIDGEFIELD-2014-BI-13933NB

PATIENT
  Age: 62 Year
  Sex: Male
  Weight: 79 kg

DRUGS (3)
  1. TRAZENTA [Suspect]
     Indication: TYPE 2 DIABETES MELLITUS
     Dosage: 5 MG
     Route: 065
     Dates: start: 20131221
  2. SPIRIVA [Concomitant]
     Dosage: 2.5 MCG
     Route: 055
  3. METGLUCO (METFORMIN HYDROCHLORIDE) [Concomitant]
     Indication: TYPE 2 DIABETES MELLITUS
     Dosage: 750 MG
     Route: 048

REACTIONS (1)
  - Glaucoma [Recovered/Resolved]
